FAERS Safety Report 12579137 (Version 2)
Quarter: 2016Q4

REPORT INFORMATION
  Report Type: Spontaneous
  Country: FR (occurrence: FR)
  Receive Date: 20160721
  Receipt Date: 20161012
  Transmission Date: 20170207
  Serious: Yes (Life-Threatening, Other)
  Sender: FDA-Public Use
  Company Number: FR-ASTRAZENECA-2016SE75798

PATIENT
  Age: 27893 Day
  Sex: Male

DRUGS (7)
  1. CARDENSIEL [Concomitant]
     Active Substance: BISOPROLOL FUMARATE
     Route: 048
  2. INIPOMP [Concomitant]
     Active Substance: PANTOPRAZOLE SODIUM
     Route: 048
  3. KARDEGIC [Suspect]
     Active Substance: ASPIRIN LYSINE
     Indication: ACUTE CORONARY SYNDROME
     Route: 048
  4. BRILIQUE [Suspect]
     Active Substance: TICAGRELOR
     Indication: ACUTE CORONARY SYNDROME
     Route: 048
  5. TRIATEC [Concomitant]
     Active Substance: RAMIPRIL
     Route: 048
  6. TAHOR [Concomitant]
     Active Substance: ATORVASTATIN CALCIUM
     Route: 048
  7. KARDEGIC [Suspect]
     Active Substance: ASPIRIN LYSINE
     Indication: ACUTE CORONARY SYNDROME
     Route: 048

REACTIONS (9)
  - CNS ventriculitis [Unknown]
  - Skull fractured base [Unknown]
  - Fall [Unknown]
  - Coma [Unknown]
  - Hydrocephalus [Unknown]
  - Meningitis [Unknown]
  - Subdural haematoma [Not Recovered/Not Resolved]
  - Subarachnoid haematoma [Not Recovered/Not Resolved]
  - Enterobacter infection [Unknown]

NARRATIVE: CASE EVENT DATE: 20160611
